FAERS Safety Report 4807085-9 (Version None)
Quarter: 2005Q4

REPORT INFORMATION
  Report Type: 
  Country: None (occurrence: None)
  Receive Date: 20051020
  Receipt Date: 20051020
  Transmission Date: 20060501
  Serious: Yes (Hospitalization)
  Sender: FDA-Public Use
  Company Number: None

PATIENT
  Age: 72 Year
  Sex: Male
  Weight: 89.5 kg

DRUGS (10)
  1. FLUORESCEIN SODIUM INJECTION 1 [Suspect]
  2. SIMVASTATIN [Concomitant]
  3. CLOTRIMAZOLE [Concomitant]
  4. TOPIRAMATE [Concomitant]
  5. AMITRIPTYLINE HCL [Concomitant]
  6. TERAZOSIN HCL [Concomitant]
  7. HCTZ 12.5/LISINOPRIL [Concomitant]
  8. DONEPEZIL HCL [Concomitant]
  9. METFORMIN HCL [Concomitant]
  10. INSULIN REG HUMAN 100 U/ML INJ NOVOLIN R [Concomitant]

REACTIONS (3)
  - DISORIENTATION [None]
  - SYNCOPE [None]
  - TACHYCARDIA [None]
